FAERS Safety Report 8472265-0 (Version None)
Quarter: 2012Q2

REPORT INFORMATION
  Report Type: 
  Country: None (occurrence: None)
  Receive Date: 20120627
  Receipt Date: 20120625
  Transmission Date: 20120825
  Serious: Yes (Death, Hospitalization)
  Sender: FDA-Public Use
  Company Number: PHHO2012BR009466

PATIENT
  Sex: Male
  Weight: 60.3 kg

DRUGS (3)
  1. SIMVASTATIN [Concomitant]
     Indication: DYSLIPIDAEMIA
     Dosage: 20 MG, UNK
     Route: 048
     Dates: start: 20111001
  2. TASIGNA [Suspect]
     Indication: CHRONIC MYELOID LEUKAEMIA
     Dosage: 400 MG, BID
     Route: 048
     Dates: start: 20100429, end: 20120322
  3. ASPIRIN [Concomitant]
     Indication: PROPHYLAXIS
     Dosage: 100 MG, UNK
     Route: 048
     Dates: start: 20111001

REACTIONS (2)
  - CARDIOPULMONARY FAILURE [None]
  - INFECTION [None]
